FAERS Safety Report 4478419-2 (Version None)
Quarter: 2004Q4

REPORT INFORMATION
  Report Type: 
  Country: None (occurrence: None)
  Receive Date: 20041019
  Receipt Date: 20041010
  Transmission Date: 20050328
  Serious: Yes (Death, Hospitalization)
  Sender: FDA-Public Use
  Company Number: UY-JNJFOC-20041002972

PATIENT
  Age: 81 Year
  Sex: Male
  Weight: 68 kg

DRUGS (8)
  1. HALDOL DECANOATE [Suspect]
     Indication: DELUSION
     Route: 042
  2. HALDOL DECANOATE [Suspect]
     Route: 042
  3. BUFFERIN [Concomitant]
  4. BUFFERIN [Concomitant]
  5. BUFFERIN [Concomitant]
  6. CLARITHROMYCIN [Concomitant]
  7. SALBUTAMOLE E IPRATROPIUS [Concomitant]
  8. SALBUTAMOLE E IPRATROPIUS [Concomitant]

REACTIONS (9)
  - CARDIAC FAILURE CONGESTIVE [None]
  - CHRONIC OBSTRUCTIVE AIRWAYS DISEASE EXACERBATED [None]
  - DEPRESSED LEVEL OF CONSCIOUSNESS [None]
  - EATING DISORDER [None]
  - MEDICATION ERROR [None]
  - MEMORY IMPAIRMENT [None]
  - MUSCLE RIGIDITY [None]
  - RESPIRATORY ARREST [None]
  - URINARY INCONTINENCE [None]
